FAERS Safety Report 4324674-9 (Version None)
Quarter: 2004Q1

REPORT INFORMATION
  Report Type: 
  Country: None (occurrence: None)
  Receive Date: 20040323
  Receipt Date: 20040317
  Transmission Date: 20041129
  Serious: Yes (Life-Threatening)
  Sender: FDA-Public Use
  Company Number: 2004-113796-NL

PATIENT
  Age: 73 Year
  Sex: Female

DRUGS (3)
  1. MIRTAZAPINE [Suspect]
     Indication: DYSTHYMIC DISORDER
     Dosage: 30 MG, ORAL
     Route: 048
     Dates: start: 20030701, end: 20030913
  2. ALPRAZOLAM [Concomitant]
  3. MIRTAZAPINE [Concomitant]

REACTIONS (1)
  - BUNDLE BRANCH BLOCK RIGHT [None]
